FAERS Safety Report 9630127 (Version 1)
Quarter: 2013Q4

REPORT INFORMATION
  Report Type: Report from Study
  Country: US (occurrence: US)
  Receive Date: 20131017
  Receipt Date: 20131017
  Transmission Date: 20140711
  Serious: Yes (Other)
  Sender: FDA-Public Use
  Company Number: US-ABBVIE-13P-163-1157416-00

PATIENT
  Age: 55 Year
  Sex: Female

DRUGS (15)
  1. HUMIRA [Suspect]
     Indication: RHEUMATOID ARTHRITIS
     Route: 058
     Dates: start: 20130819, end: 201309
  2. SYNTHROID [Concomitant]
     Indication: HYPOTHYROIDISM
  3. NORVASC [Concomitant]
     Indication: HYPERTENSION
  4. ENDOCORT [Concomitant]
     Indication: COLITIS
  5. LOSARTAN [Concomitant]
     Indication: HYPERTENSION
  6. AZATHIOPRINE [Concomitant]
     Indication: RHEUMATOID ARTHRITIS
  7. HYDROXYCHLOROQUINE [Concomitant]
     Indication: RHEUMATOID ARTHRITIS
  8. EFFEXOR [Concomitant]
     Indication: DEPRESSION
  9. PREDNISONE [Concomitant]
     Indication: RHEUMATOID ARTHRITIS
  10. LOMOTIL [Concomitant]
     Indication: COLITIS
  11. ZOFRAN [Concomitant]
     Indication: COLITIS
  12. BACLOFEN [Concomitant]
     Indication: HEADACHE
  13. LANTUS [Concomitant]
     Indication: DIABETES MELLITUS
  14. HUMALOG [Concomitant]
     Indication: DIABETES MELLITUS
  15. ENVIL [Concomitant]
     Indication: INSOMNIA

REACTIONS (3)
  - Systemic lupus erythematosus [Recovered/Resolved]
  - Skin lesion [Recovered/Resolved]
  - Swollen tongue [Recovered/Resolved]
